FAERS Safety Report 6505527-4 (Version None)
Quarter: 2009Q4

REPORT INFORMATION
  Report Type: 
  Country: None (occurrence: None)
  Receive Date: 20091217
  Receipt Date: 20091217
  Transmission Date: 20100525
  Serious: Yes (Other)
  Sender: FDA-Public Use
  Company Number: None

PATIENT
  Age: 78 Year
  Sex: Female
  Weight: 63.5036 kg

DRUGS (2)
  1. METOCLOPRAMIDE [Suspect]
     Indication: NAUSEA
     Dosage: 1 TABLET 2-3 TIMES PER DAY PO
     Route: 048
     Dates: start: 20090727, end: 20091112
  2. METOCLOPRAMIDE [Suspect]
     Indication: VOMITING
     Dosage: 1 TABLET 2-3 TIMES PER DAY PO
     Route: 048
     Dates: start: 20090727, end: 20091112

REACTIONS (1)
  - TARDIVE DYSKINESIA [None]
